FAERS Safety Report 19267211 (Version 2)
Quarter: 2021Q3

REPORT INFORMATION
  Report Type: Spontaneous
  Country: US (occurrence: US)
  Receive Date: 20210517
  Receipt Date: 20210915
  Transmission Date: 20211014
  Serious: Yes (Other)
  Sender: FDA-Public Use
  Company Number: US-PFIZER INC-2021238872

PATIENT
  Age: 62 Year
  Sex: Male
  Weight: 98.41 kg

DRUGS (4)
  1. INLYTA [Suspect]
     Active Substance: AXITINIB
     Dosage: 1 DF, 2X/DAY
     Route: 048
     Dates: start: 20210225, end: 202108
  2. KEYTRUDA [Concomitant]
     Active Substance: PEMBROLIZUMAB
     Dosage: UNK
  3. INLYTA [Suspect]
     Active Substance: AXITINIB
     Indication: RENAL CELL CARCINOMA
     Dosage: 3 MG (3 TABLETS OF 1 MG), 2X/DAY
     Route: 048
     Dates: start: 20201218
  4. DEXAMETHASONE. [Concomitant]
     Active Substance: DEXAMETHASONE
     Dosage: 2 MG

REACTIONS (11)
  - Pain in extremity [Recovered/Resolved]
  - Visual impairment [Recovering/Resolving]
  - Illusion [Recovering/Resolving]
  - Headache [Recovering/Resolving]
  - Blood pressure fluctuation [Recovered/Resolved]
  - Erythema [Recovered/Resolved]
  - Arthralgia [Recovered/Resolved]
  - Confusional state [Recovering/Resolving]
  - Diarrhoea [Recovered/Resolved]
  - Radiation necrosis [Recovering/Resolving]
  - Fatigue [Recovered/Resolved]
